FAERS Safety Report 5279922-8 (Version None)
Quarter: 2007Q1

REPORT INFORMATION
  Report Type: 
  Country: None (occurrence: None)
  Receive Date: 20070326
  Receipt Date: 20070326
  Transmission Date: 20070707
  Serious: Yes (Other)
  Sender: FDA-Public Use
  Company Number: None

PATIENT
  Age: 59 Year
  Sex: Male
  Weight: 88.4514 kg

DRUGS (4)
  1. LEVAQUIN [Suspect]
     Indication: ABDOMINAL DISCOMFORT
     Dosage: 500MG ONCE DAILY PO
     Route: 048
     Dates: start: 20060713, end: 20060722
  2. LEVAQUIN [Suspect]
     Indication: DIVERTICULITIS
     Dosage: 500MG ONCE DAILY PO
     Route: 048
     Dates: start: 20060713, end: 20060722
  3. LEVAQUIN [Suspect]
     Indication: ABDOMINAL DISCOMFORT
     Dosage: 500MG ONCE DAILY PO
     Route: 048
     Dates: start: 20060818, end: 20060819
  4. LEVAQUIN [Suspect]
     Indication: DIVERTICULITIS
     Dosage: 500MG ONCE DAILY PO
     Route: 048
     Dates: start: 20060818, end: 20060819

REACTIONS (5)
  - ARTHRALGIA [None]
  - BLOOD CREATINE PHOSPHOKINASE INCREASED [None]
  - MUSCULOSKELETAL PAIN [None]
  - MYALGIA [None]
  - TENDON PAIN [None]
